FAERS Safety Report 21223952 (Version 1)
Quarter: 2022Q3

REPORT INFORMATION
  Report Type: Spontaneous
  Country: US (occurrence: None)
  Receive Date: 20220817
  Receipt Date: 20220817
  Transmission Date: 20221027
  Serious: Yes (Other)
  Sender: FDA-Public Use
  Company Number: None

PATIENT
  Age: 43 Year
  Sex: Female
  Weight: 153 kg

DRUGS (8)
  1. BAMLANIVIMAB [Suspect]
     Active Substance: BAMLANIVIMAB
     Dates: start: 20220816, end: 20220816
  2. LEXAPRO [Concomitant]
     Active Substance: ESCITALOPRAM OXALATE
  3. CONCERTA [Concomitant]
     Active Substance: METHYLPHENIDATE HYDROCHLORIDE
  4. SPIRONOLACTONE [Concomitant]
     Active Substance: SPIRONOLACTONE
  5. TOPAMAX [Concomitant]
     Active Substance: TOPIRAMATE
  6. UNSPECIFIED INGREDIENT [Concomitant]
     Active Substance: UNSPECIFIED INGREDIENT
  7. Magnesium Centrum 1 a day [Concomitant]
  8. XYZAL [Concomitant]
     Active Substance: LEVOCETIRIZINE DIHYDROCHLORIDE

REACTIONS (5)
  - Dizziness [None]
  - Nausea [None]
  - Hyperhidrosis [None]
  - Dysmenorrhoea [None]
  - Vaginal haemorrhage [None]

NARRATIVE: CASE EVENT DATE: 20220816
